FAERS Safety Report 5475816-3 (Version None)
Quarter: 2007Q4

REPORT INFORMATION
  Report Type: 
  Country: None (occurrence: None)
  Receive Date: 20071003
  Receipt Date: 20070926
  Transmission Date: 20080405
  Serious: Yes (Hospitalization)
  Sender: FDA-Public Use
  Company Number: B0453678A

PATIENT
  Age: 70 Year
  Sex: Female
  Weight: 69 kg

DRUGS (5)
  1. ZELITREX [Suspect]
     Indication: HERPES VIRUS INFECTION
     Route: 048
     Dates: start: 20061206, end: 20061206
  2. ACETAMINOPHEN [Suspect]
     Dosage: 1G THREE TIMES PER DAY
     Route: 048
  3. CODOLIPRANE [Suspect]
     Dosage: 1TAB PER DAY
     Route: 048
  4. INEXIUM [Suspect]
     Indication: GASTRIC ULCER
     Dosage: 40MG PER DAY
     Route: 048
  5. PROPRANOLOL HYDROCHLORIDE [Suspect]
     Indication: ESSENTIAL HYPERTENSION
     Dosage: 40MG TWICE PER DAY
     Route: 048
     Dates: end: 20061206

REACTIONS (8)
  - ABDOMINAL PAIN [None]
  - ABDOMINAL PAIN UPPER [None]
  - CEREBELLAR SYNDROME [None]
  - CHILLS [None]
  - DIARRHOEA [None]
  - DIZZINESS [None]
  - HYPERHIDROSIS [None]
  - VOMITING [None]
